FAERS Safety Report 8571208-9 (Version None)
Quarter: 2012Q3

REPORT INFORMATION
  Report Type: 
  Country: None (occurrence: None)
  Receive Date: 20120806
  Receipt Date: 20120802
  Transmission Date: 20120928
  Serious: No
  Sender: FDA-Public Use
  Company Number: US-PFIZER INC-2012117819

PATIENT
  Age: 51 Year
  Sex: Female
  Weight: 70.748 kg

DRUGS (5)
  1. SYNTHROID [Concomitant]
     Indication: THYROID DISORDER
     Dosage: 75 MCG, DAILY
  2. MIRAPEX [Concomitant]
     Indication: NEURALGIA
     Dosage: 0.125 MG, DAILY AT NIGHT
  3. PAXIL [Concomitant]
     Indication: DEPRESSION
     Dosage: 30 MG, DAILY
  4. LYRICA [Suspect]
     Indication: FIBROMYALGIA
     Dosage: 100 MG, 3X/DAY
     Dates: start: 20080101, end: 20120201
  5. NEXIUM [Concomitant]
     Indication: GASTROOESOPHAGEAL REFLUX DISEASE
     Dosage: 40 MG, DAILY

REACTIONS (2)
  - NASOPHARYNGITIS [None]
  - MALAISE [None]
